FAERS Safety Report 21734143 (Version 1)
Quarter: 2022Q4

REPORT INFORMATION
  Report Type: Spontaneous
  Country: US (occurrence: None)
  Receive Date: 20221214
  Receipt Date: 20221214
  Transmission Date: 20230112
  Serious: Yes (Hospitalization)
  Sender: FDA-Public Use
  Company Number: None

PATIENT
  Age: 65 Year
  Sex: Male

DRUGS (3)
  1. MYCOPHENOLIC ACID [Suspect]
     Active Substance: MYCOPHENOLIC ACID
     Indication: Renal transplant
     Dosage: 500 MG ORAL??TAKE 1 TABLET BY MOUTH TWICE DAILY
     Route: 048
     Dates: start: 20190119
  2. ENVARSUS KR [Concomitant]
  3. MYCOPHENOLAT. [Concomitant]

REACTIONS (1)
  - Device failure [None]

NARRATIVE: CASE EVENT DATE: 20221121
